FAERS Safety Report 23543945 (Version 1)
Quarter: 2024Q1

REPORT INFORMATION
  Report Type: Spontaneous
  Country: US (occurrence: None)
  Receive Date: 20240216
  Receipt Date: 20240216
  Transmission Date: 20240410
  Serious: Yes (Hospitalization)
  Sender: FDA-Public Use
  Company Number: None

PATIENT
  Sex: Male

DRUGS (2)
  1. PURIXAN [Suspect]
     Active Substance: MERCAPTOPURINE
     Dosage: FREQUENCY : DAILY;?OTHER ROUTE : NG TUBE ?
     Route: 050
     Dates: start: 202401
  2. XATMEP [Suspect]
     Active Substance: METHOTREXATE
     Dosage: FREQUENCY : WEEKLY;?OTHER ROUTE : NG TUBE ;?
     Route: 050
     Dates: start: 202401

REACTIONS (1)
  - Hospitalisation [None]
